FAERS Safety Report 7978785-7 (Version None)
Quarter: 2011Q4

REPORT INFORMATION
  Report Type: 
  Country: None (occurrence: None)
  Receive Date: 20111214
  Receipt Date: 20111206
  Transmission Date: 20120403
  Serious: Yes (Death, Hospitalization)
  Sender: FDA-Public Use
  Company Number: DE-BRISTOL-MYERS SQUIBB COMPANY-16195760

PATIENT
  Age: 66 Year
  Sex: Male
  Weight: 76 kg

DRUGS (1)
  1. SPRYCEL [Suspect]
     Indication: ACUTE LYMPHOCYTIC LEUKAEMIA
     Dosage: RECEIVED SINCE APPROXIMATELY FEB-2011
     Route: 048
     Dates: start: 20110201, end: 20110601

REACTIONS (4)
  - CEREBRAL HAEMORRHAGE [None]
  - HYDROCEPHALUS [None]
  - ARRHYTHMIA [None]
  - ERYSIPELAS [None]
